FAERS Safety Report 25785305 (Version 1)
Quarter: 2025Q3

REPORT INFORMATION
  Report Type: Spontaneous
  Country: GB (occurrence: GB)
  Receive Date: 20250910
  Receipt Date: 20250910
  Transmission Date: 20251021
  Serious: Yes (Other)
  Sender: CURIUM PHARMACEUTICALS
  Company Number: GB-CURIUM-2025000567

PATIENT

DRUGS (3)
  1. SODIUM IODIDE [Suspect]
     Active Substance: SODIUM IODIDE
     Indication: Graves^ disease
     Route: 048
  2. PREDNISOLONE [Concomitant]
     Active Substance: PREDNISOLONE
     Indication: Graves^ disease
     Route: 048
  3. PREDNISOLONE [Concomitant]
     Active Substance: PREDNISOLONE
     Indication: Graves^ disease
     Route: 048

REACTIONS (1)
  - Endocrine ophthalmopathy [Unknown]
